FAERS Safety Report 16855989 (Version 3)
Quarter: 2019Q4

REPORT INFORMATION
  Report Type: Spontaneous
  Country: US (occurrence: US)
  Receive Date: 20190926
  Receipt Date: 20191010
  Transmission Date: 20200122
  Serious: Yes (Hospitalization, Other)
  Sender: FDA-Public Use
  Company Number: US-HORIZON-KRY-0735-2019

PATIENT
  Age: 70 Year
  Sex: Male

DRUGS (6)
  1. SOLU-MEDROL [Concomitant]
     Active Substance: METHYLPREDNISOLONE SODIUM SUCCINATE
     Indication: PREMEDICATION
  2. AMLODIPINE [Concomitant]
     Active Substance: AMLODIPINE BESYLATE
  3. COLCHICINE. [Concomitant]
     Active Substance: COLCHICINE
  4. KRYSTEXXA [Suspect]
     Active Substance: PEGLOTICASE
     Indication: GOUT
     Route: 042
     Dates: start: 20180622, end: 20190820
  5. NAPROSYN [Concomitant]
     Active Substance: NAPROXEN
  6. METOPROLOL. [Concomitant]
     Active Substance: METOPROLOL

REACTIONS (6)
  - Insomnia [Unknown]
  - Blood magnesium decreased [Unknown]
  - Dehydration [Unknown]
  - Pneumonia [Unknown]
  - Steroid withdrawal syndrome [Unknown]
  - Ulcer haemorrhage [Unknown]
